FAERS Safety Report 4732851-8 (Version None)
Quarter: 2005Q3

REPORT INFORMATION
  Report Type: 
  Country: None (occurrence: None)
  Receive Date: 20050803
  Receipt Date: 20040726
  Transmission Date: 20060218
  Serious: No
  Sender: FDA-Public Use
  Company Number: US-GLAXOSMITHKLINE-A0519731A

PATIENT
  Age: 69 Year
  Sex: Female

DRUGS (5)
  1. AVANDAMET [Suspect]
     Dosage: 2TAB TWICE PER DAY
     Route: 048
  2. LIPITOR [Concomitant]
  3. PREMARIN [Concomitant]
  4. GLUCOTROL XL [Concomitant]
  5. TIMOPTIC [Concomitant]

REACTIONS (2)
  - JOINT SWELLING [None]
  - OEDEMA [None]
